FAERS Safety Report 8764385 (Version 1)
Quarter: 2012Q4

REPORT INFORMATION
  Report Type: 
  Country: HK (occurrence: HK)
  Receive Date: 20120831
  Receipt Date: 20120831
  Transmission Date: 20130627
  Serious: Yes (Death, Other)
  Sender: FDA-Public Use
  Company Number: PHHY2012HK075387

PATIENT
  Age: 11 Year
  Sex: Male

DRUGS (7)
  1. CICLOSPORIN [Suspect]
     Indication: PROPHYLAXIS AGAINST GRAFT VERSUS HOST DISEASE
  2. FLUDARABINE [Suspect]
     Indication: SURGICAL PRECONDITIONING
  3. ALEMTUZUMAB [Suspect]
     Indication: PROPHYLAXIS AGAINST GRAFT VERSUS HOST DISEASE
  4. CYCLOPHOSPHAMIDE [Concomitant]
     Indication: SURGICAL PRECONDITIONING
  5. FLUCONAZOLE [Concomitant]
     Indication: ANTIFUNGAL PROPHYLAXIS
  6. ACICLOVIR [Concomitant]
  7. CO-TRIMOXAZOLE [Concomitant]

REACTIONS (4)
  - Blood stem cell transplant failure [Fatal]
  - Viral infection [Unknown]
  - Norovirus test positive [Unknown]
  - Diarrhoea [Unknown]
